FAERS Safety Report 10403796 (Version 1)
Quarter: 2014Q3

REPORT INFORMATION
  Report Type: Spontaneous
  Country: US (occurrence: US)
  Receive Date: 20140822
  Receipt Date: 20140822
  Transmission Date: 20150326
  Serious: No
  Sender: FDA-Public Use
  Company Number: US-NOVEN-14US009667

PATIENT
  Age: 44 Year
  Sex: Female

DRUGS (3)
  1. MINIVELLE [Suspect]
     Active Substance: ESTRADIOL
     Indication: HOT FLUSH
     Dosage: .0375 MG X 2
     Route: 062
     Dates: start: 201311
  2. MINIVELLE [Suspect]
     Active Substance: ESTRADIOL
     Indication: ALOPECIA
  3. MINIVELLE [Suspect]
     Active Substance: ESTRADIOL
     Indication: NIGHT SWEATS
     Dosage: .0375 MG

REACTIONS (5)
  - Wrong technique in drug usage process [Not Recovered/Not Resolved]
  - Blood oestrogen decreased [None]
  - Drug prescribing error [Not Recovered/Not Resolved]
  - Drug ineffective [Not Recovered/Not Resolved]
  - Product quality issue [Not Recovered/Not Resolved]

NARRATIVE: CASE EVENT DATE: 20140530
